FAERS Safety Report 14212960 (Version 1)
Quarter: 2017Q4

REPORT INFORMATION
  Report Type: Spontaneous
  Country: US (occurrence: US)
  Receive Date: 20171122
  Receipt Date: 20171122
  Transmission Date: 20180321
  Serious: No
  Sender: FDA-Public Use
  Company Number: US-GLAXOSMITHKLINE-US2017176867

PATIENT
  Age: 48 Year
  Sex: Female

DRUGS (2)
  1. NICODERM CQ [Suspect]
     Active Substance: NICOTINE
     Indication: SMOKING CESSATION THERAPY
     Dosage: 21 MG, UNK
     Dates: start: 20171102
  2. NICODERM CQ [Suspect]
     Active Substance: NICOTINE
     Dosage: 21 MG, UNK
     Dates: start: 20171110

REACTIONS (3)
  - Expired product administered [Unknown]
  - Headache [Unknown]
  - Feeling jittery [Unknown]

NARRATIVE: CASE EVENT DATE: 20171110
